FAERS Safety Report 13174825 (Version 2)
Quarter: 2018Q1

REPORT INFORMATION
  Report Type: Spontaneous
  Country: US (occurrence: US)
  Receive Date: 20170201
  Receipt Date: 20180124
  Transmission Date: 20180508
  Serious: No
  Sender: FDA-Public Use
  Company Number: US-ABBVIE-16K-163-1562448-00

PATIENT

DRUGS (1)
  1. HUMIRA [Suspect]
     Active Substance: ADALIMUMAB
     Indication: PSORIATIC ARTHROPATHY
     Route: 058
     Dates: start: 2012

REACTIONS (13)
  - Frustration tolerance decreased [Unknown]
  - Asthenia [Unknown]
  - Quality of life decreased [Unknown]
  - Pain [Unknown]
  - Injection site pain [Unknown]
  - Malaise [Unknown]
  - Feeling abnormal [Unknown]
  - Musculoskeletal disorder [Unknown]
  - Pain in extremity [Unknown]
  - Impaired work ability [Unknown]
  - Psoriatic arthropathy [Unknown]
  - Gastric disorder [Unknown]
  - Dyspepsia [Unknown]
